FAERS Safety Report 21709594 (Version 1)
Quarter: 2022Q4

REPORT INFORMATION
  Report Type: Spontaneous
  Country: FR (occurrence: FR)
  Receive Date: 20221210
  Receipt Date: 20221210
  Transmission Date: 20230113
  Serious: Yes (Other)
  Sender: FDA-Public Use
  Company Number: None

PATIENT
  Age: 53 Year
  Sex: Female

DRUGS (2)
  1. HYDROXYCHLOROQUINE [Suspect]
     Active Substance: HYDROXYCHLOROQUINE
     Indication: Cutaneous lupus erythematosus
     Dates: start: 2016, end: 202203
  2. TOZINAMERAN [Suspect]
     Active Substance: TOZINAMERAN
     Indication: COVID-19 immunisation
     Dosage: D2
     Dates: start: 202107

REACTIONS (1)
  - Motor dysfunction [Not Recovered/Not Resolved]

NARRATIVE: CASE EVENT DATE: 20210801
